FAERS Safety Report 22176176 (Version 1)
Quarter: 2023Q2

REPORT INFORMATION
  Report Type: Spontaneous
  Country: US (occurrence: None)
  Receive Date: 20230404
  Receipt Date: 20230404
  Transmission Date: 20230721
  Serious: Yes (Death, Hospitalization)
  Sender: FDA-Public Use
  Company Number: None

PATIENT
  Age: 27 Year
  Sex: Male

DRUGS (1)
  1. PROMACTA [Suspect]
     Active Substance: ELTROMBOPAG OLAMINE
     Indication: Aplastic anaemia
     Dosage: FREQUENCY : DAILY;?
     Route: 048
     Dates: start: 20221109, end: 20230308

REACTIONS (5)
  - Endocarditis [None]
  - Systemic candida [None]
  - Escherichia bacteraemia [None]
  - Septic shock [None]
  - Hypervolaemia [None]

NARRATIVE: CASE EVENT DATE: 20230223
